FAERS Safety Report 8256596-5 (Version None)
Quarter: 2012Q2

REPORT INFORMATION
  Report Type: 
  Country: None (occurrence: None)
  Receive Date: 20120403
  Receipt Date: 20120326
  Transmission Date: 20120825
  Serious: Yes (Disabling, Other)
  Sender: FDA-Public Use
  Company Number: US-BAYER-2011-081009

PATIENT
  Age: 63 Year
  Sex: Male
  Weight: 61 kg

DRUGS (10)
  1. MAGNEVIST [Suspect]
     Indication: ANGIOGRAM
     Dosage: UNK, ONCE
     Dates: start: 20060717, end: 20060717
  2. NORVASC [Concomitant]
     Indication: HYPERTENSION
     Dosage: 2.5 MG, BID
     Dates: start: 20030101
  3. EPOGEN [Concomitant]
     Indication: NEPHROPATHY
     Dosage: UNK
     Dates: start: 19920101
  4. IRON [Concomitant]
     Indication: BLOOD IRON DECREASED
  5. OXYCODONE HCL [Concomitant]
     Indication: PAIN
     Dosage: 40 MG, TID
     Dates: start: 20090101
  6. NEPHROVITE [VIT C,VIT H,B5,B12,B9,B3,B6,B2,B1 HCL] [Concomitant]
     Indication: NEPHROPATHY
     Dosage: UNK
     Dates: start: 19770101
  7. LEBACARTON [Concomitant]
     Indication: NEUROLOGICAL SYMPTOM
     Dosage: 330 MG, TID
  8. SENSIPAR [Concomitant]
     Indication: PARATHYROID DISORDER
  9. MAGNEVIST [Suspect]
  10. CORTICOSTEROIDS [Concomitant]

REACTIONS (31)
  - SKIN DISORDER [None]
  - ACTIVITIES OF DAILY LIVING IMPAIRED [None]
  - MUSCULAR WEAKNESS [None]
  - ASTHENIA [None]
  - DRY SKIN [None]
  - HYPOAESTHESIA [None]
  - ARTHRALGIA [None]
  - SKIN EXFOLIATION [None]
  - NEPHROGENIC SYSTEMIC FIBROSIS [None]
  - MOBILITY DECREASED [None]
  - JOINT RANGE OF MOTION DECREASED [None]
  - EXTREMITY CONTRACTURE [None]
  - MUSCLE ATROPHY [None]
  - SENSORY LOSS [None]
  - SKIN INDURATION [None]
  - SKIN ATROPHY [None]
  - SKIN FRAGILITY [None]
  - AMYLOIDOSIS [None]
  - GRIP STRENGTH DECREASED [None]
  - SKIN DISCOLOURATION [None]
  - ANHEDONIA [None]
  - SCLERODERMA [None]
  - PALLOR [None]
  - PAIN [None]
  - EMOTIONAL DISTRESS [None]
  - ANXIETY [None]
  - MUSCULOSKELETAL STIFFNESS [None]
  - BURNING SENSATION [None]
  - MOTOR DYSFUNCTION [None]
  - JOINT CONTRACTURE [None]
  - XEROSIS [None]
